FAERS Safety Report 4434969-6 (Version None)
Quarter: 2004Q3

REPORT INFORMATION
  Report Type: 
  Country: None (occurrence: None)
  Receive Date: 20040726
  Receipt Date: 20040519
  Transmission Date: 20050211
  Serious: No
  Sender: FDA-Public Use
  Company Number: USA040567942

PATIENT
  Age: 69 Year
  Sex: Female
  Weight: 58 kg

DRUGS (7)
  1. FORTEO [Suspect]
     Indication: OSTEOPOROSIS
     Dosage: 20 UG/L DAY
     Dates: start: 20040604
  2. LOMETREXOL [Concomitant]
  3. CELEBREX [Concomitant]
  4. VERAPAMIL [Concomitant]
  5. MULTI-VITAMIN [Concomitant]
  6. OMEGA-3 (OMEGA-3 TRIGLYCERIDES) [Concomitant]
  7. CALCIUM [Concomitant]

REACTIONS (2)
  - ASTHENIA [None]
  - FATIGUE [None]
